FAERS Safety Report 10768838 (Version 1)
Quarter: 2015Q1

REPORT INFORMATION
  Report Type: Spontaneous
  Country: CA (occurrence: None)
  Receive Date: 20150204
  Receipt Date: 20150204
  Transmission Date: 20150721
  Serious: Yes (Death)
  Sender: FDA-Public Use
  Company Number: 201501000028

PATIENT

DRUGS (1)
  1. INOMAX [Suspect]
     Active Substance: NITRIC OXIDE
     Route: 055
     Dates: start: 201501, end: 201501

REACTIONS (2)
  - Acute respiratory distress syndrome [None]
  - Off label use [None]

NARRATIVE: CASE EVENT DATE: 201501
